FAERS Safety Report 7051553-9 (Version None)
Quarter: 2010Q4

REPORT INFORMATION
  Report Type: 
  Country: None (occurrence: None)
  Receive Date: 20101019
  Receipt Date: 20101005
  Transmission Date: 20110411
  Serious: Yes (Hospitalization, Other)
  Sender: FDA-Public Use
  Company Number: US-ELI_LILLY_AND_COMPANY-US201008007452

PATIENT
  Sex: Female

DRUGS (6)
  1. FORTEO [Suspect]
     Indication: OSTEOPOROSIS
     Dosage: 20 UG, DAILY (1/D)
     Route: 065
     Dates: start: 20100201
  2. LISINOPRIL [Concomitant]
  3. ASPIRIN [Concomitant]
  4. VITAMIN D [Concomitant]
  5. ASCORBIC ACID [Concomitant]
  6. MULTI-VITAMIN [Concomitant]

REACTIONS (5)
  - ANAEMIA [None]
  - ASTHENIA [None]
  - GASTRIC ULCER HAEMORRHAGE [None]
  - HAEMATOCHEZIA [None]
  - SYNCOPE [None]
